FAERS Safety Report 19080633 (Version 1)
Quarter: 2021Q1

REPORT INFORMATION
  Report Type: Report from Study
  Country: TR (occurrence: TR)
  Receive Date: 20210331
  Receipt Date: 20210331
  Transmission Date: 20210420
  Serious: Yes (Hospitalization)
  Sender: FDA-Public Use
  Company Number: TR-DSJP-DSE-2021-109770

PATIENT
  Age: 59 Year
  Sex: Male
  Weight: 85 kg

DRUGS (4)
  1. CEFPODOXIME [Concomitant]
     Active Substance: CEFPODOXIME
     Indication: GINGIVITIS
     Dosage: 200 UNK
     Dates: start: 20210211, end: 20210212
  2. KLAMOKS [Concomitant]
     Indication: GINGIVITIS
     Dosage: 2000 UNK
     Route: 048
     Dates: start: 20210312, end: 20210313
  3. EDOXABAN [Suspect]
     Active Substance: EDOXABAN TOSYLATE
     Indication: ATRIAL FIBRILLATION
     Dosage: 30 MG, QD
     Dates: start: 20210105, end: 20210213
  4. DOLOREX                            /00044201/ [Concomitant]
     Indication: PAIN
     Dosage: 50 UNK
     Route: 048
     Dates: start: 20210211, end: 20210212

REACTIONS (3)
  - Gastrointestinal haemorrhage [Recovered/Resolved]
  - Drug interaction [Recovered/Resolved]
  - Abdominal pain [Recovered/Resolved]

NARRATIVE: CASE EVENT DATE: 20210213
